FAERS Safety Report 24009571 (Version 1)
Quarter: 2024Q2

REPORT INFORMATION
  Report Type: Spontaneous
  Country: CN (occurrence: CN)
  Receive Date: 20240625
  Receipt Date: 20240625
  Transmission Date: 20240715
  Serious: Yes (Other)
  Sender: FDA-Public Use
  Company Number: None

PATIENT
  Age: 35 Year
  Sex: Female
  Weight: 52 kg

DRUGS (11)
  1. CYCLOPHOSPHAMIDE [Suspect]
     Active Substance: CYCLOPHOSPHAMIDE
     Indication: Acute lymphocytic leukaemia
     Dosage: 0.4 G, ONE TIME IN ONE DAY, DILUTED WITH 100 ML OF SODIUM CHLORIDE, AS A PART OF VDCLP REGIMEN
     Route: 041
     Dates: start: 20240522, end: 20240524
  2. SODIUM CHLORIDE [Suspect]
     Active Substance: SODIUM CHLORIDE
     Indication: Medication dilution
     Dosage: 100 ML, ONE TIME IN ONE DAY, USED TO DILUTE 0.4G OF CYCLOPHOSPHAMIDE
     Route: 041
     Dates: start: 20240522, end: 20240524
  3. SODIUM CHLORIDE [Suspect]
     Active Substance: SODIUM CHLORIDE
     Dosage: 100 ML, ONE TIME IN ONE DAY, USED TO DILUTE 2 MG OF VINCRISTINE
     Route: 041
     Dates: start: 20240523, end: 20240523
  4. SODIUM CHLORIDE [Suspect]
     Active Substance: SODIUM CHLORIDE
     Dosage: 100 ML (0.9%), QD, USED TO DILUTE 300 UG OF HUMAN GRANULOCYTE COLONY-STIMULATING FACTOR
     Route: 041
     Dates: start: 20240524, end: 20240612
  5. METHYLPREDNISOLONE SODIUM SUCCINATE [Suspect]
     Active Substance: METHYLPREDNISOLONE SODIUM SUCCINATE
     Indication: Acute lymphocytic leukaemia
     Dosage: 40 MG, ONE TIME IN ONE DAY, DILUTED WITH 100 ML OF SODIUM CHLORIDE, AS A PART OF VDCLP REGIMEN
     Route: 041
     Dates: start: 20240518, end: 20240528
  6. METHYLPREDNISOLONE SODIUM SUCCINATE [Suspect]
     Active Substance: METHYLPREDNISOLONE SODIUM SUCCINATE
     Indication: Symptomatic treatment
  7. DAUNORUBICIN HYDROCHLORIDE [Suspect]
     Active Substance: DAUNORUBICIN HYDROCHLORIDE
     Indication: Acute lymphocytic leukaemia
     Dosage: 80 MG, ONE TIME IN ONE DAY, DILUTED WITH 250 ML OF SODIUM CHLORIDE, AS A PART OF VDCLP REGIMEN
     Route: 041
     Dates: start: 20240521, end: 20240523
  8. VINCRISTINE SULFATE [Suspect]
     Active Substance: VINCRISTINE SULFATE
     Indication: Acute lymphocytic leukaemia
     Dosage: 2 MG, ONE TIME IN ONE DAY, DILUTED WITH 100 ML OF SODIUM CHLORIDE, AS A PART OF VDCLP REGIMEN
     Route: 041
     Dates: start: 20240523, end: 20240523
  9. SODIUM CHLORIDE [Suspect]
     Active Substance: SODIUM CHLORIDE
     Indication: Medication dilution
     Dosage: 250 ML, ONE TIME IN ONE DAY, USED TO DILUTE 80 G OF DAUNORUBICIN HYDROCHLORIDE
     Route: 041
     Dates: start: 20240521, end: 20240523
  10. SODIUM CHLORIDE [Suspect]
     Active Substance: SODIUM CHLORIDE
     Dosage: 100 ML, ONE TIME IN ONE DAY, USED TO DILUTE 40 MG OF METHYLPREDNISOLONE
     Route: 041
     Dates: start: 20240518, end: 20240528
  11. GRANULOCYTE COLONY-STIMULATING FACTOR NOS [Suspect]
     Active Substance: GRANULOCYTE COLONY-STIMULATING FACTOR NOS
     Dosage: 300 UG, QD, DILUTED WITH 100 ML OF 0.9% SODIUM CHLORIDE
     Route: 041
     Dates: start: 20240524, end: 20240612

REACTIONS (7)
  - Agranulocytosis [Recovering/Resolving]
  - Pyrexia [Recovering/Resolving]
  - Gastrointestinal haemorrhage [Recovering/Resolving]
  - Abdominal pain [Unknown]
  - Haematemesis [Recovered/Resolved]
  - Abdominal infection [Unknown]
  - Vomiting [Unknown]

NARRATIVE: CASE EVENT DATE: 20240527
